FAERS Safety Report 12655794 (Version 2)
Quarter: 2016Q3

REPORT INFORMATION
  Report Type: Spontaneous
  Country: US (occurrence: US)
  Receive Date: 20160816
  Receipt Date: 20160830
  Transmission Date: 20161109
  Serious: No
  Sender: FDA-Public Use
  Company Number: US-PFIZER INC-2016375834

PATIENT
  Age: 47 Year
  Sex: Male

DRUGS (1)
  1. ADVIL PM [Suspect]
     Active Substance: DIPHENHYDRAMINE CITRATE\IBUPROFEN
     Indication: SLEEP DISORDER
     Dosage: 200 MG, UNK, ^ONE CAPLET BY MOUTH^
     Route: 048
     Dates: start: 201606, end: 2016

REACTIONS (3)
  - Product taste abnormal [Recovered/Resolved]
  - Malaise [Unknown]
  - Dysgeusia [Recovered/Resolved]

NARRATIVE: CASE EVENT DATE: 2016
